FAERS Safety Report 7296123-2 (Version None)
Quarter: 2011Q1

REPORT INFORMATION
  Report Type: 
  Country: None (occurrence: None)
  Receive Date: 20110216
  Receipt Date: 20110208
  Transmission Date: 20110831
  Serious: Yes (Death)
  Sender: FDA-Public Use
  Company Number: US-ROCHE-758913

PATIENT
  Sex: Female

DRUGS (3)
  1. XELODA [Suspect]
     Route: 048
  2. AVASTIN [Suspect]
     Route: 042
  3. IRINOTECAN [Concomitant]

REACTIONS (1)
  - DEATH [None]
